FAERS Safety Report 9933574 (Version 2)
Quarter: 2014Q1

REPORT INFORMATION
  Report Type: Report from Study
  Country: US (occurrence: US)
  Receive Date: 20140228
  Receipt Date: 20140228
  Transmission Date: 20141002
  Serious: No
  Sender: FDA-Public Use
  Company Number: US-MYLANLABS-2013S1024876

PATIENT
  Age: 20 Year
  Sex: Female

DRUGS (4)
  1. AMNESTEEM CAPSULES [Suspect]
     Indication: ACNE
     Dates: start: 201112, end: 2011
  2. AMNESTEEM CAPSULES [Suspect]
     Indication: ACNE
     Dates: start: 20130905, end: 20131102
  3. CLARAVIS [Suspect]
     Indication: ACNE
     Dates: start: 201110
  4. CLARAVIS [Suspect]
     Indication: ACNE
     Dates: start: 201201, end: 2012

REACTIONS (1)
  - Depression [Not Recovered/Not Resolved]
